FAERS Safety Report 10404132 (Version 1)
Quarter: 2014Q1

REPORT INFORMATION
  Report Type: Spontaneous
  Country: US (occurrence: None)
  Receive Date: 20131121
  Receipt Date: 20131121
  Transmission Date: 20141002
  Serious: No
  Sender: FDA-Public Use
  Company Number: 1000047856

PATIENT
  Sex: Female

DRUGS (1)
  1. TUDORZA PRESSAIR (ACLIDINIUM BROMIDE) (POWDER) [Suspect]
     Indication: EMPHYSEMA

REACTIONS (1)
  - Cough [None]
